FAERS Safety Report 7690959-1 (Version None)
Quarter: 2011Q3

REPORT INFORMATION
  Report Type: 
  Country: None (occurrence: None)
  Receive Date: 20110818
  Receipt Date: 20110816
  Transmission Date: 20111222
  Serious: Yes (Other)
  Sender: FDA-Public Use
  Company Number: ES-SANOFI-AVENTIS-2011SA052231

PATIENT
  Age: 76 Year
  Sex: Female
  Weight: 67 kg

DRUGS (5)
  1. INSULATARD NPH HUMAN [Concomitant]
     Route: 065
     Dates: start: 20020101, end: 20040101
  2. ACTRAPID HUMAN [Concomitant]
     Dates: start: 20020101, end: 20040101
  3. NOVORAPID [Concomitant]
     Dates: start: 20040101
  4. INSULIN GLARGINE [Suspect]
     Route: 065
     Dates: start: 20040101
  5. HUMAN MIXTARD 30 GE [Concomitant]
     Dates: start: 20040101, end: 20060101

REACTIONS (1)
  - RECTAL CANCER [None]
